FAERS Safety Report 8503683-X (Version None)
Quarter: 2012Q3

REPORT INFORMATION
  Report Type: 
  Country: None (occurrence: None)
  Receive Date: 20120711
  Receipt Date: 20120626
  Transmission Date: 20120928
  Serious: No
  Sender: FDA-Public Use
  Company Number: CA-JNJFOC-20120613913

PATIENT
  Sex: Female
  Weight: 55 kg

DRUGS (3)
  1. IMURAN [Concomitant]
     Route: 065
  2. REMICADE [Suspect]
     Indication: CROHN'S DISEASE
     Route: 042
     Dates: start: 20100309
  3. DESLORATADINE [Concomitant]
     Route: 065

REACTIONS (3)
  - PHARYNGITIS STREPTOCOCCAL [None]
  - MALAISE [None]
  - PYREXIA [None]
